FAERS Safety Report 14279533 (Version 1)
Quarter: 2017Q4

REPORT INFORMATION
  Report Type: Spontaneous
  Country: US (occurrence: US)
  Receive Date: 20171212
  Receipt Date: 20171212
  Transmission Date: 20180321
  Serious: No
  Sender: FDA-Public Use
  Company Number: US-PURDUE-USA-2017-0141044

PATIENT
  Sex: Female
  Weight: 72.56 kg

DRUGS (3)
  1. HYDROMORPHONE TABLET (RHODES) [Suspect]
     Active Substance: HYDROMORPHONE
     Indication: BACK PAIN
  2. HYDROMORPHONE TABLET (RHODES) [Suspect]
     Active Substance: HYDROMORPHONE
     Indication: PAIN IN EXTREMITY
     Dosage: 4 MG, TID
     Route: 048
     Dates: start: 20170826
  3. HYDROMORPHONE TABLET (RHODES) [Suspect]
     Active Substance: HYDROMORPHONE
     Indication: PAIN IN EXTREMITY

REACTIONS (4)
  - Feeling abnormal [Recovered/Resolved]
  - Inadequate analgesia [Not Recovered/Not Resolved]
  - Drug effect increased [Unknown]
  - Drug ineffective [Not Recovered/Not Resolved]
